FAERS Safety Report 8217585-X (Version None)
Quarter: 2012Q1

REPORT INFORMATION
  Report Type: 
  Country: None (occurrence: None)
  Receive Date: 20120319
  Receipt Date: 20120319
  Transmission Date: 20120608
  Serious: No
  Sender: FDA-Public Use
  Company Number: None

PATIENT
  Age: 50 Year
  Sex: Male
  Weight: 99.79 kg

DRUGS (2)
  1. ZICAM COLD REMEDY SWABS [Suspect]
     Indication: NASOPHARYNGITIS
     Dosage: 1 SWAB
     Route: 045
     Dates: start: 20050101, end: 20110601
  2. ZICAM NASAL SPRAY [Concomitant]
     Indication: NASOPHARYNGITIS
     Dosage: 2 SPRAYS
     Route: 045

REACTIONS (2)
  - ANOSMIA [None]
  - NASAL DISCOMFORT [None]
